FAERS Safety Report 6841768-4 (Version None)
Quarter: 2010Q3

REPORT INFORMATION
  Report Type: 
  Country: None (occurrence: None)
  Receive Date: 20100714
  Receipt Date: 20070711
  Transmission Date: 20110219
  Serious: No
  Sender: FDA-Public Use
  Company Number: US-PFIZER INC-2007059219

PATIENT
  Sex: Female
  Weight: 55 kg

DRUGS (6)
  1. CHANTIX [Suspect]
     Indication: SMOKING CESSATION THERAPY
     Dates: start: 20070701
  2. ZOLOFT [Concomitant]
  3. NALTREXONE [Concomitant]
  4. PREMPRO [Concomitant]
     Indication: MENOPAUSE
  5. CLONAZEPAM [Concomitant]
  6. DRUG, UNSPECIFIED [Concomitant]

REACTIONS (2)
  - ABNORMAL DREAMS [None]
  - INCREASED APPETITE [None]
